FAERS Safety Report 7314255-7 (Version None)
Quarter: 2011Q1

REPORT INFORMATION
  Report Type: 
  Country: None (occurrence: None)
  Receive Date: 20110225
  Receipt Date: 20100709
  Transmission Date: 20110831
  Serious: No
  Sender: FDA-Public Use
  Company Number: US-MYLANLABS-2010S1011279

PATIENT
  Age: 18 Year
  Sex: Female
  Weight: 63.5 kg

DRUGS (3)
  1. ORAL CONTRACEPTIVE NOS [Concomitant]
     Dosage: WITHOUT COMPLICATIONS
     Dates: start: 20090101
  2. AMNESTEEM [Suspect]
     Indication: ACNE CYSTIC
     Route: 048
     Dates: start: 20100510, end: 20100609
  3. AMNESTEEM [Suspect]
     Route: 048
     Dates: start: 20100610, end: 20100619

REACTIONS (4)
  - BLOOD TRIGLYCERIDES INCREASED [None]
  - BLOOD CHOLESTEROL INCREASED [None]
  - ALANINE AMINOTRANSFERASE INCREASED [None]
  - ASPARTATE AMINOTRANSFERASE INCREASED [None]
